FAERS Safety Report 13358828 (Version 6)
Quarter: 2017Q3

REPORT INFORMATION
  Report Type: Spontaneous
  Country: JP (occurrence: JP)
  Receive Date: 20170322
  Receipt Date: 20170714
  Transmission Date: 20171127
  Serious: Yes (Death, Hospitalization, Other)
  Sender: FDA-Public Use
  Company Number: JP-009507513-1703JPN009376

PATIENT
  Age: 65 Year
  Sex: Female
  Weight: 63 kg

DRUGS (21)
  1. FOSFOMYCIN [Suspect]
     Active Substance: FOSFOMYCIN
  2. SOLITA [Concomitant]
     Indication: SEPSIS
     Dosage: UNK
     Route: 042
     Dates: start: 20090708, end: 20090709
  3. SOLACET F [Concomitant]
     Indication: SEPSIS
     Dosage: UNK
     Route: 042
     Dates: start: 20090709, end: 20090813
  4. INOVAN (DOPAMINE HYDROCHLORIDE) [Suspect]
     Active Substance: DOPAMINE HYDROCHLORIDE
     Indication: SEPSIS
     Dosage: UNK
     Route: 042
     Dates: start: 20090708, end: 20090814
  5. NEOLAMIN [Concomitant]
     Indication: SEPSIS
     Dosage: UNK
     Route: 042
     Dates: start: 20090708, end: 20090709
  6. IMIPENEM AND CILASTATIN [Suspect]
     Active Substance: CILASTATIN SODIUM\IMIPENEM
     Indication: SEPSIS
  7. EXACIN [Suspect]
     Active Substance: ISEPAMICIN
     Indication: SEPSIS
  8. DALACIN [Suspect]
     Active Substance: CLINDAMYCIN
     Indication: ANTIBIOTIC THERAPY
     Dosage: 900 MG, UNK
     Route: 042
     Dates: start: 20090709, end: 20090713
  9. DALACIN [Suspect]
     Active Substance: CLINDAMYCIN
     Indication: SEPSIS
  10. PANTOL [Concomitant]
     Active Substance: DEXPANTHENOL
     Indication: SEPSIS
     Dosage: UNK
     Route: 042
     Dates: start: 20090708, end: 20090708
  11. FUTHAN [Concomitant]
     Active Substance: NAFAMOSTAT MESYLATE
     Indication: SEPSIS
     Dosage: UNK
     Route: 042
     Dates: start: 20090709, end: 20090813
  12. SOLITA T-1 [Concomitant]
     Indication: SEPSIS
     Dosage: UNK
     Route: 042
     Dates: start: 20090709, end: 20090709
  13. PENTAGIN [Concomitant]
     Active Substance: PENTAZOCINE HYDROCHLORIDE
     Indication: SEPSIS
     Dosage: UNK
     Route: 042
     Dates: start: 20090709, end: 20090709
  14. NOREPINEPHRINE. [Concomitant]
     Active Substance: NOREPINEPHRINE
     Indication: SEPSIS
     Dosage: UNK
     Route: 042
     Dates: start: 20090708, end: 20090712
  15. VANCOMYCIN [Suspect]
     Active Substance: VANCOMYCIN
     Indication: ANTIBIOTIC THERAPY
     Dosage: 1000 MG, UNK
     Route: 042
     Dates: start: 20090709, end: 20090713
  16. VANCOMYCIN [Suspect]
     Active Substance: VANCOMYCIN
     Indication: SEPSIS
  17. IMIPENEM AND CILASTATIN [Suspect]
     Active Substance: CILASTATIN SODIUM\IMIPENEM
     Indication: ANTIBIOTIC THERAPY
     Dosage: 500 MG, UNK
     Route: 042
     Dates: start: 20090708, end: 20090804
  18. EXACIN [Suspect]
     Active Substance: ISEPAMICIN
     Indication: PYREXIA
     Dosage: 200 MG, UNK
  19. VENILON [Concomitant]
     Active Substance: HUMAN IMMUNOGLOBULIN G
     Indication: SEPSIS
     Dosage: UNK
     Route: 042
     Dates: start: 20090708, end: 20090709
  20. MEYLON [Concomitant]
     Active Substance: SODIUM BICARBONATE
     Indication: SEPSIS
     Dosage: UNK
     Route: 042
     Dates: start: 20090709, end: 20090710
  21. PITRESSIN [Concomitant]
     Active Substance: VASOPRESSIN
     Indication: SEPSIS
     Dosage: UNK
     Route: 042
     Dates: start: 20090709, end: 20090709

REACTIONS (8)
  - Wound infection pseudomonas [Fatal]
  - Multiple organ dysfunction syndrome [Fatal]
  - Renal failure [Fatal]
  - Septic shock [Fatal]
  - Wound infection fungal [Unknown]
  - Hepatic failure [Fatal]
  - General physical health deterioration [Not Recovered/Not Resolved]
  - Gas gangrene [Recovered/Resolved]

NARRATIVE: CASE EVENT DATE: 20090708
